FAERS Safety Report 5023626-3 (Version None)
Quarter: 2006Q2

REPORT INFORMATION
  Report Type: 
  Country: None (occurrence: None)
  Receive Date: 20060606
  Receipt Date: 20060523
  Transmission Date: 20061013
  Serious: Yes (Life-Threatening, Hospitalization)
  Sender: FDA-Public Use
  Company Number: 225570

PATIENT
  Age: 81 Year
  Sex: Female
  Weight: 63 kg

DRUGS (12)
  1. AVASTIN [Suspect]
     Indication: COLON CANCER
     Dosage: SEE IMAGE
     Route: 042
     Dates: start: 20060316, end: 20060427
  2. AVASTIN [Suspect]
     Indication: COLON CANCER
     Dosage: SEE IMAGE
     Route: 042
     Dates: start: 20060216
  3. FLUOROURACIL [Concomitant]
  4. LEUCOVORIN CALCIUM [Concomitant]
  5. DECADRON SRC [Concomitant]
  6. ANZEMET [Concomitant]
  7. B12 COMPLEX (CYANOCOBALAMIN, VITAMIN B COMPLEX) [Concomitant]
  8. LANOXIN [Concomitant]
  9. ATENOLOL [Concomitant]
  10. KLONOPIN [Concomitant]
  11. LORTAB [Concomitant]
  12. PROTONIX [Concomitant]

REACTIONS (12)
  - ARTERIOSCLEROSIS [None]
  - ARTHROPATHY [None]
  - COMPUTERISED TOMOGRAM ABNORMAL [None]
  - DEHYDRATION [None]
  - DYSPNOEA [None]
  - GASTRITIS [None]
  - INTRACARDIAC THROMBUS [None]
  - POST PROCEDURAL COMPLICATION [None]
  - RENAL DISORDER [None]
  - VASCULAR CALCIFICATION [None]
  - VENOOCCLUSIVE DISEASE [None]
  - X-RAY OF PELVIS AND HIP ABNORMAL [None]
